FAERS Safety Report 21467150 (Version 2)
Quarter: 2022Q4

REPORT INFORMATION
  Report Type: Spontaneous
  Country: JP (occurrence: JP)
  Receive Date: 20221017
  Receipt Date: 20221115
  Transmission Date: 20230112
  Serious: Yes (Life-Threatening, Hospitalization)
  Sender: FDA-Public Use
  Company Number: JP-MH-2022M1113810AA

PATIENT
  Age: 65 Year
  Sex: Female

DRUGS (6)
  1. CARBOPLATIN [Suspect]
     Active Substance: CARBOPLATIN
     Indication: Neuromyelitis optica spectrum disorder
     Dosage: CYCLE, AREA UNDER THE CONCENTRATION-TIME CURVE 5
     Route: 065
  2. CARBOPLATIN [Suspect]
     Active Substance: CARBOPLATIN
     Indication: Malignant melanoma
  3. PACLITAXEL [Suspect]
     Active Substance: PACLITAXEL
     Indication: Neuromyelitis optica spectrum disorder
     Dosage: 200 MILLIGRAM/SQ. METER, CYCLE
     Route: 065
  4. PACLITAXEL [Suspect]
     Active Substance: PACLITAXEL
     Indication: Malignant melanoma
  5. BEVACIZUMAB [Suspect]
     Active Substance: BEVACIZUMAB
     Indication: Neuromyelitis optica spectrum disorder
     Dosage: 15 MILLIGRAM/KILOGRAM, CYCLE
     Route: 065
  6. BEVACIZUMAB [Suspect]
     Active Substance: BEVACIZUMAB
     Indication: Malignant melanoma

REACTIONS (2)
  - Disease progression [Unknown]
  - Drug ineffective [Unknown]
